FAERS Safety Report 8211155-5 (Version None)
Quarter: 2012Q1

REPORT INFORMATION
  Report Type: 
  Country: None (occurrence: None)
  Receive Date: 20120315
  Receipt Date: 20120309
  Transmission Date: 20120608
  Serious: Yes (Death, Hospitalization, Other)
  Sender: FDA-Public Use
  Company Number: MX-SANOFI-AVENTIS-2012SA016394

PATIENT
  Age: 38 Year
  Sex: Male

DRUGS (1)
  1. LANTUS [Suspect]
     Indication: DIABETES MELLITUS
     Route: 058
     Dates: start: 20040101, end: 20110113

REACTIONS (4)
  - HYPERTENSION [None]
  - DISEASE COMPLICATION [None]
  - RESPIRATORY ARREST [None]
  - RENAL FAILURE [None]
